FAERS Safety Report 12339104 (Version 2)
Quarter: 2016Q2

REPORT INFORMATION
  Report Type: Spontaneous
  Country: US (occurrence: US)
  Receive Date: 20160505
  Receipt Date: 20160505
  Transmission Date: 20160815
  Serious: No
  Sender: FDA-Public Use
  Company Number: US-MAYNE PHARMA-2016MYN000001

PATIENT
  Age: 50 Year
  Sex: Female
  Weight: 39.91 kg

DRUGS (6)
  1. PAXIL [Suspect]
     Active Substance: PAROXETINE HYDROCHLORIDE
     Indication: ANXIETY
     Dosage: UNK
     Dates: start: 20160107
  2. XANAX [Concomitant]
     Active Substance: ALPRAZOLAM
     Indication: SLEEP DISORDER
  3. LIOTHYRONINE [Suspect]
     Active Substance: LIOTHYRONINE
     Dosage: 25 MCG, 1/2 TABLET, QAM
     Route: 048
     Dates: start: 20160108, end: 20160111
  4. XANAX [Concomitant]
     Active Substance: ALPRAZOLAM
     Indication: ANXIETY
     Dosage: UNK
     Dates: start: 201512
  5. LIOTHYRONINE [Suspect]
     Active Substance: LIOTHYRONINE
     Indication: TRI-IODOTHYRONINE DECREASED
     Dosage: 25 MCG, 1 TABLET, QAM, ONCE
     Route: 048
     Dates: start: 20160107, end: 20160107
  6. PAXIL [Suspect]
     Active Substance: PAROXETINE HYDROCHLORIDE
     Indication: SLEEP DISORDER

REACTIONS (2)
  - Abdominal pain upper [Recovered/Resolved]
  - Headache [Recovered/Resolved]

NARRATIVE: CASE EVENT DATE: 20160107
